FAERS Safety Report 22055495 (Version 1)
Quarter: 2023Q1

REPORT INFORMATION
  Report Type: Spontaneous
  Country: US (occurrence: None)
  Receive Date: 20230302
  Receipt Date: 20230302
  Transmission Date: 20230418
  Serious: No
  Sender: FDA-Public Use
  Company Number: None

PATIENT
  Age: 61 Year
  Sex: Male

DRUGS (1)
  1. ABIRATERONE [Suspect]
     Active Substance: ABIRATERONE

REACTIONS (3)
  - Hepatic enzyme increased [None]
  - Bone neoplasm [None]
  - Therapy interrupted [None]

NARRATIVE: CASE EVENT DATE: 20230227
